FAERS Safety Report 8493727-6 (Version None)
Quarter: 2012Q3

REPORT INFORMATION
  Report Type: 
  Country: None (occurrence: None)
  Receive Date: 20120706
  Receipt Date: 20120628
  Transmission Date: 20120928
  Serious: Yes (Other)
  Sender: FDA-Public Use
  Company Number: PHHY2012US056606

PATIENT
  Age: 64 Year
  Sex: Male

DRUGS (2)
  1. ACETYLSALICYLIC ACID SRT [Suspect]
     Dosage: 325 MG
     Route: 048
  2. IBUPROFEN (ADVIL) [Concomitant]

REACTIONS (5)
  - GASTROINTESTINAL OBSTRUCTION [None]
  - HEADACHE [None]
  - RASH [None]
  - URTICARIA [None]
  - INTRA-ABDOMINAL HAEMORRHAGE [None]
